FAERS Safety Report 25435775 (Version 1)
Quarter: 2025Q2

REPORT INFORMATION
  Report Type: Spontaneous
  Country: GB (occurrence: GB)
  Receive Date: 20250613
  Receipt Date: 20250613
  Transmission Date: 20250717
  Serious: Yes (Other)
  Sender: ASTELLAS
  Company Number: None

PATIENT
  Sex: Female

DRUGS (3)
  1. MIRABEGRON [Suspect]
     Active Substance: MIRABEGRON
     Indication: Bladder irritation
     Route: 065
     Dates: start: 20250603, end: 20250605
  2. ATORVASTATIN [Concomitant]
     Active Substance: ATORVASTATIN
     Indication: Adverse drug reaction
     Route: 050
  3. IMVAGGIS [Concomitant]
     Indication: Product used for unknown indication
     Route: 050
     Dates: start: 2022, end: 2022

REACTIONS (10)
  - Sleep disorder [Unknown]
  - Abdominal pain upper [Unknown]
  - Nausea [Unknown]
  - Dizziness [Unknown]
  - Dyspepsia [Unknown]
  - Malaise [Unknown]
  - Diarrhoea [Unknown]
  - Initial insomnia [Unknown]
  - Blood pressure increased [Unknown]
  - Headache [Not Recovered/Not Resolved]

NARRATIVE: CASE EVENT DATE: 20250603
